FAERS Safety Report 25419062 (Version 1)
Quarter: 2025Q2

REPORT INFORMATION
  Report Type: Spontaneous
  Country: IT (occurrence: IT)
  Receive Date: 20250610
  Receipt Date: 20250610
  Transmission Date: 20250717
  Serious: Yes (Life-Threatening, Hospitalization, Other)
  Sender: MYLAN
  Company Number: None

PATIENT
  Age: 13 Year
  Sex: Female
  Weight: 55 kg

DRUGS (8)
  1. SERTRALINE [Suspect]
     Active Substance: SERTRALINE HYDROCHLORIDE
     Indication: Product used for unknown indication
     Dates: start: 20250525, end: 20250525
  2. SERTRALINE [Suspect]
     Active Substance: SERTRALINE HYDROCHLORIDE
     Route: 048
     Dates: start: 20250525, end: 20250525
  3. SERTRALINE [Suspect]
     Active Substance: SERTRALINE HYDROCHLORIDE
     Route: 048
     Dates: start: 20250525, end: 20250525
  4. SERTRALINE [Suspect]
     Active Substance: SERTRALINE HYDROCHLORIDE
     Dates: start: 20250525, end: 20250525
  5. NIAPRAZINE [Suspect]
     Active Substance: NIAPRAZINE
     Indication: Product used for unknown indication
     Dosage: 15 MILLILITER, QD THE PATIENT TOOK NIAPRAZINE 15 MG/ 5ML ONE AND A HALF DOSER ( 15 ML)
     Dates: start: 20250525, end: 20250525
  6. NIAPRAZINE [Suspect]
     Active Substance: NIAPRAZINE
     Dosage: 15 MILLILITER, QD THE PATIENT TOOK NIAPRAZINE 15 MG/ 5ML ONE AND A HALF DOSER ( 15 ML)
     Route: 048
     Dates: start: 20250525, end: 20250525
  7. NIAPRAZINE [Suspect]
     Active Substance: NIAPRAZINE
     Dosage: 15 MILLILITER, QD THE PATIENT TOOK NIAPRAZINE 15 MG/ 5ML ONE AND A HALF DOSER ( 15 ML)
     Route: 048
     Dates: start: 20250525, end: 20250525
  8. NIAPRAZINE [Suspect]
     Active Substance: NIAPRAZINE
     Dosage: 15 MILLILITER, QD THE PATIENT TOOK NIAPRAZINE 15 MG/ 5ML ONE AND A HALF DOSER ( 15 ML)
     Dates: start: 20250525, end: 20250525

REACTIONS (5)
  - Syncope [Recovered/Resolved]
  - Drug abuse [Recovered/Resolved]
  - Somnolence [Recovered/Resolved]
  - Confusional state [Recovered/Resolved]
  - Vomiting [Recovered/Resolved]

NARRATIVE: CASE EVENT DATE: 20250525
